FAERS Safety Report 5445937-X (Version None)
Quarter: 2007Q3

REPORT INFORMATION
  Report Type: 
  Country: None (occurrence: None)
  Receive Date: 20070907
  Receipt Date: 20070829
  Transmission Date: 20080115
  Serious: Yes (Other)
  Sender: FDA-Public Use
  Company Number: PHEH2007US04745

PATIENT
  Age: 78 Year
  Sex: Female

DRUGS (18)
  1. ZELNORM [Suspect]
     Indication: IRRITABLE BOWEL SYNDROME
     Dosage: 6 MG, BID
     Route: 065
     Dates: start: 20060101, end: 20070408
  2. TOPROL-XL [Concomitant]
     Dosage: 50MG , UNK
  3. IMDUR [Concomitant]
     Indication: ANGINA PECTORIS
  4. LIPITOR [Concomitant]
     Indication: HYPERLIPIDAEMIA
  5. PLAVIX [Concomitant]
     Indication: CORONARY ARTERY BYPASS
     Dosage: 75MG, UNK
  6. VIGAMOX [Concomitant]
  7. RESTASIS [Concomitant]
  8. ACTONEL [Concomitant]
     Dosage: 35MG, UNK
  9. AMBIEN [Concomitant]
     Dosage: 12.5MG, UNK
  10. ISOSORBIDE MONONITRATE [Concomitant]
     Dosage: 60MG, UNK
  11. ENABLEX [Concomitant]
     Dosage: 15MG, UNK
  12. FOLTX [Concomitant]
  13. ANUCORT-HC [Concomitant]
     Dosage: 25MG, UNK
  14. ALPRAZOLAM [Concomitant]
     Dosage: 0.25MG, UNK
  15. PREVACID [Concomitant]
     Dosage: 15MG, UNK
  16. NYSTATIN [Concomitant]
  17. FOSAMAX [Concomitant]
     Dosage: 70MG, UNK
  18. ALTACE [Concomitant]
     Dosage: 2.5MG, UNK

REACTIONS (1)
  - MYOCARDIAL INFARCTION [None]
